FAERS Safety Report 12450051 (Version 1)
Quarter: 2016Q2

REPORT INFORMATION
  Report Type: Other
  Country: RU (occurrence: RU)
  Receive Date: 20160609
  Receipt Date: 20160609
  Transmission Date: 20160815
  Serious: Yes (Death)
  Sender: FDA-Public Use
  Company Number: RU-ACTELION-A-CH2016-137039

PATIENT
  Age: 47 Year
  Sex: Female

DRUGS (3)
  1. TRACLEER [Suspect]
     Active Substance: BOSENTAN
     Dosage: 125 MG, BID
     Route: 048
     Dates: end: 20160523
  2. TRACLEER [Suspect]
     Active Substance: BOSENTAN
     Indication: PULMONARY ARTERIAL HYPERTENSION
     Dosage: 62.5 MG, BID
     Route: 048
  3. VEROSPIRON [Concomitant]
     Active Substance: SPIRONOLACTONE
     Dosage: 50 MG, QD

REACTIONS (6)
  - Pulmonary arterial hypertension [Recovered/Resolved]
  - Disease progression [Recovered/Resolved]
  - Condition aggravated [Not Recovered/Not Resolved]
  - Sudden death [Fatal]
  - Oedema peripheral [Recovered/Resolved]
  - Dyspnoea [Not Recovered/Not Resolved]

NARRATIVE: CASE EVENT DATE: 201604
